FAERS Safety Report 6158597-X (Version None)
Quarter: 2009Q2

REPORT INFORMATION
  Report Type: 
  Country: None (occurrence: None)
  Receive Date: 20090408
  Receipt Date: 20080404
  Transmission Date: 20091009
  Serious: Yes (Death)
  Sender: FDA-Public Use
  Company Number: 169686USA

PATIENT
  Age: 39 Year
  Sex: Male

DRUGS (2)
  1. TRAZODONE HYDROCHLORIDE [Suspect]
     Indication: ANXIETY
     Dosage: IN THE EVENING AS NEEDED TO SLEEP (50 MG, 1 IN 1 D)
     Dates: start: 20050321, end: 20050301
  2. SERTRALINE HCL [Suspect]
     Indication: ANXIETY
     Dosage: 50 MG (50 MG, 1 IN 1 D)
     Dates: start: 20050321, end: 20050301

REACTIONS (3)
  - ABNORMAL BEHAVIOUR [None]
  - COMPLETED SUICIDE [None]
  - NERVOUSNESS [None]
